FAERS Safety Report 9849289 (Version 1)
Quarter: 2013Q4

REPORT INFORMATION
  Report Type: Spontaneous
  Country: US (occurrence: None)
  Receive Date: 20131223
  Receipt Date: 20131223
  Transmission Date: 20140711
  Serious: Yes (Other)
  Sender: FDA-Public Use
  Company Number: CABO-13003418

PATIENT
  Age: 74 Year
  Sex: Female

DRUGS (8)
  1. COMETRIQ (CABOZANTINIB) CAPSULE [Suspect]
     Indication: RENAL CANCER
     Route: 048
     Dates: start: 20130805, end: 20131001
  2. ACTOS (PIOGLITAZONE HYDROCHLORIDE) [Concomitant]
  3. CALCIUM (CALCIUM CHLORIDE HEXAHYDRATE) [Concomitant]
  4. PHENYTOIN (PHENYTOIN SODIUM) [Concomitant]
  5. DILANTIN (PHENYTOIN SODIUM) [Concomitant]
  6. AMIODARONE HYDROCHLORIDE (AMIODARONE HYDROCHLORIDE) [Concomitant]
  7. METOPROLOL (METOPROLOL TARTRATE) [Concomitant]
  8. JANUVIA (SITAGLIPTIN PHOSPHATE) [Concomitant]

REACTIONS (2)
  - Malignant neoplasm progression [None]
  - Off label use [None]
